FAERS Safety Report 23268476 (Version 2)
Quarter: 2024Q1

REPORT INFORMATION
  Report Type: Spontaneous
  Country: JP (occurrence: JP)
  Receive Date: 20231206
  Receipt Date: 20240130
  Transmission Date: 20240410
  Serious: Yes (Hospitalization)
  Sender: FDA-Public Use
  Company Number: JP-DSJP-DSJ-2023-149291

PATIENT
  Age: 69 Year
  Sex: Female

DRUGS (12)
  1. DENOSUMAB [Suspect]
     Active Substance: DENOSUMAB
     Indication: Metastases to bone
     Dosage: UNK
     Route: 065
  2. ZOLEDRONIC ACID [Suspect]
     Active Substance: ZOLEDRONIC ACID
     Indication: Metastases to bone
     Dosage: UNK
     Route: 065
  3. HALAVEN [Concomitant]
     Active Substance: ERIBULIN MESYLATE
     Indication: Metastases to bone
     Dosage: UNK UNK, QD
     Route: 042
     Dates: start: 20230224, end: 20230224
  4. HALAVEN [Concomitant]
     Active Substance: ERIBULIN MESYLATE
     Indication: Metastases to liver
     Dosage: UNK
  5. CALCIUM CARBONATE\CHOLECALCIFEROL\MAGNESIUM CARBONATE [Concomitant]
     Active Substance: CALCIUM CARBONATE\CHOLECALCIFEROL\MAGNESIUM CARBONATE
     Indication: Metastases to bone
     Dosage: 2 DOSAGE FORM, QD
     Route: 048
     Dates: start: 20180928
  6. CALCIUM CARBONATE\CHOLECALCIFEROL\MAGNESIUM CARBONATE [Concomitant]
     Active Substance: CALCIUM CARBONATE\CHOLECALCIFEROL\MAGNESIUM CARBONATE
     Indication: Metastases to liver
     Dosage: UNK UNK, UNK
  7. BIO-THREE [Concomitant]
     Active Substance: HERBALS
     Indication: Metastases to bone
     Dosage: 1 DF, TID
     Route: 065
     Dates: start: 20201127
  8. BIO-THREE [Concomitant]
     Active Substance: HERBALS
     Indication: Metastases to liver
     Dosage: UNK
  9. OMEPRAZOLE [Concomitant]
     Active Substance: OMEPRAZOLE
     Indication: Metastases to bone
     Dosage: 10 MILLIGRAM, QD
     Route: 065
     Dates: start: 20221021
  10. OMEPRAZOLE [Concomitant]
     Active Substance: OMEPRAZOLE
     Indication: Metastases to liver
     Dosage: UNK
  11. ZINC [Concomitant]
     Active Substance: PYRITHIONE ZINC\ZINC\ZINC CHLORIDE
     Indication: Metastases to bone
     Dosage: 25 MILLIGRAM, BID
     Route: 065
     Dates: start: 20221226
  12. ZINC [Concomitant]
     Active Substance: PYRITHIONE ZINC\ZINC\ZINC CHLORIDE
     Indication: Metastases to liver
     Dosage: UNK

REACTIONS (2)
  - Atypical femur fracture [Recovering/Resolving]
  - Fall [Unknown]

NARRATIVE: CASE EVENT DATE: 20230404
